FAERS Safety Report 22218741 (Version 3)
Quarter: 2023Q2

REPORT INFORMATION
  Report Type: Spontaneous
  Country: IN (occurrence: IN)
  Receive Date: 20230417
  Receipt Date: 20230511
  Transmission Date: 20230722
  Serious: Yes (Other)
  Sender: FDA-Public Use
  Company Number: IN-PFIZER INC-PV202300067201

PATIENT
  Age: 62 Year
  Sex: Female

DRUGS (17)
  1. INOTUZUMAB OZOGAMICIN [Suspect]
     Active Substance: INOTUZUMAB OZOGAMICIN
     Dosage: 1 MG, CYCLIC (IN 4ML OF NS AND WAS PUT ON 50ML OF NS AND GIVEN OVER 1 HOUR, CYLCE#1)
     Route: 042
     Dates: start: 20230228
  2. CEFOPERAZONE SODIUM\SULBACTAM SODIUM [Concomitant]
     Active Substance: CEFOPERAZONE SODIUM\SULBACTAM SODIUM
     Dosage: 1.5 MG, 2X/DAY
  3. LEVOTHYROXINE [Concomitant]
     Active Substance: LEVOTHYROXINE
     Dosage: 25 MG, 1X/DAY(BEFORE BREAKFAST)
  4. SEPTRAN DS [Concomitant]
     Dosage: UNK, 1X/DAY(MONDAY/WEDNESDAY/FRIDAY)
  5. ACIVIR [ACICLOVIR] [Concomitant]
     Dosage: 400 MG, 2X/DAY
  6. FOLVITE [Concomitant]
     Active Substance: FOLIC ACID
     Dosage: 5 MG, 1X/DAY
  7. UPRISE D3 [Concomitant]
     Dosage: 60K, WEEKLY
  8. POSHOPE [Concomitant]
     Dosage: 300 MG, 1X/DAY
  9. PAN [Concomitant]
     Dosage: 40 MG, 1X/DAY
  10. ONDANSETRON HYDROCHLORIDE [Concomitant]
     Active Substance: ONDANSETRON HYDROCHLORIDE
     Indication: Vomiting
     Dosage: 8 MG
     Route: 042
  11. SURBEX GOLD [Concomitant]
     Dosage: UNK, 1X/DAY
  12. TAH [Concomitant]
     Dosage: 40 MG, 1X/DAY
  13. ESCITALENT LS [Concomitant]
     Dosage: (AT BED TIME)
  14. JANUMET [Concomitant]
     Active Substance: METFORMIN HYDROCHLORIDE\SITAGLIPTIN PHOSPHATE
     Dosage: 50/500, 2X/DAY
  15. ACETAMINOPHEN [Concomitant]
     Active Substance: ACETAMINOPHEN
     Indication: Pyrexia
     Dosage: 650 MG
  16. DEXAMETHASONE [Concomitant]
     Active Substance: DEXAMETHASONE
     Dosage: 8 MG, 2X/DAY
  17. GRANULOCYTE COLONY-STIMULATING FACTOR NOS [Concomitant]
     Active Substance: GRANULOCYTE COLONY-STIMULATING FACTOR NOS
     Dosage: 300 MG
     Route: 058

REACTIONS (10)
  - Neutropenia [Unknown]
  - Anaemia [Unknown]
  - White blood cell count decreased [Unknown]
  - Platelet count decreased [Unknown]
  - C-reactive protein increased [Unknown]
  - Heart rate increased [Unknown]
  - Blood urea increased [Unknown]
  - Blood chloride increased [Unknown]
  - Protein total decreased [Unknown]
  - Eating disorder [Unknown]

NARRATIVE: CASE EVENT DATE: 20230101
